FAERS Safety Report 16162486 (Version 1)
Quarter: 2019Q2

REPORT INFORMATION
  Report Type: Spontaneous
  Country: US (occurrence: US)
  Receive Date: 20190301
  Receipt Date: 20190301
  Transmission Date: 20190711
  Serious: Yes (Life-Threatening, Hospitalization, Disabling)
  Sender: FDA-Public Use
  Company Number: None

PATIENT
  Age: 72 Year
  Sex: Female
  Weight: 45.36 kg

DRUGS (13)
  1. ALLUPURINOL/ZYLOPRIM 300MG [Concomitant]
  2. LEVOTHYROXINE/SYNTHYROID 24000 UNITS [Concomitant]
  3. BEVESPI INHALER [Concomitant]
  4. SAMSCA [Concomitant]
     Active Substance: TOLVAPTAN
  5. VITAMIN D3 [Concomitant]
     Active Substance: CHOLECALCIFEROL
  6. CREON/PANCRELIPASE 24,000UNITS [Concomitant]
  7. METOPROLOL/LOPRESSOR 50MG [Concomitant]
  8. IBROTINIB 140 MG [Concomitant]
  9. INTERMEZZO/ZOLPIDEMTARTATE 3.5 MG [Concomitant]
  10. NEXIUM 20 MG [Concomitant]
  11. ZOLOFT/SERTRALINE 25MG [Concomitant]
  12. VITAMIN B12 [Concomitant]
     Active Substance: CYANOCOBALAMIN
  13. IRBESARTAN GENERIC FRO: AUAPRO [Suspect]
     Active Substance: IRBESARTAN
     Indication: HYPERTENSION
     Dosage: ?          QUANTITY:150 ML MILLILITRE(S);?
     Route: 048
     Dates: start: 20090320, end: 20180807

REACTIONS (2)
  - Non-Hodgkin^s lymphoma [None]
  - Chronic lymphocytic leukaemia [None]

NARRATIVE: CASE EVENT DATE: 20180604
